FAERS Safety Report 9812759 (Version 1)
Quarter: 2014Q1

REPORT INFORMATION
  Report Type: Spontaneous
  Country: US (occurrence: US)
  Receive Date: 20140113
  Receipt Date: 20140113
  Transmission Date: 20141002
  Serious: No
  Sender: FDA-Public Use
  Company Number: US-009507513-1401USA004660

PATIENT
  Sex: 0

DRUGS (1)
  1. FOSAMAX PLUS D [Suspect]
     Dosage: UNK
     Route: 048

REACTIONS (1)
  - Jaw disorder [Unknown]
